FAERS Safety Report 7589392-2 (Version None)
Quarter: 2011Q3

REPORT INFORMATION
  Report Type: 
  Country: None (occurrence: None)
  Receive Date: 20110705
  Receipt Date: 20110622
  Transmission Date: 20111222
  Serious: Yes (Other)
  Sender: FDA-Public Use
  Company Number: US-ROCHE-765554

PATIENT
  Sex: Female
  Weight: 62.6 kg

DRUGS (3)
  1. AMNESTEEM [Suspect]
     Route: 065
  2. ACCUTANE [Suspect]
     Route: 065
     Dates: start: 20020708, end: 20030922
  3. ACCUTANE [Suspect]
     Route: 065
     Dates: start: 20040708, end: 20050115

REACTIONS (10)
  - INFLAMMATORY BOWEL DISEASE [None]
  - ROAD TRAFFIC ACCIDENT [None]
  - COLITIS ULCERATIVE [None]
  - DEPRESSION [None]
  - SUICIDAL IDEATION [None]
  - DIVERTICULUM [None]
  - HAEMORRHOIDS [None]
  - ANXIETY [None]
  - LIGAMENT RUPTURE [None]
  - IRRITABLE BOWEL SYNDROME [None]
